FAERS Safety Report 8033209-9 (Version None)
Quarter: 2012Q1

REPORT INFORMATION
  Report Type: 
  Country: None (occurrence: None)
  Receive Date: 20120110
  Receipt Date: 20120103
  Transmission Date: 20120608
  Serious: Yes (Other)
  Sender: FDA-Public Use
  Company Number: NZ-AMGEN-NZLSP2011061220

PATIENT
  Age: 18 Year
  Sex: Female

DRUGS (7)
  1. ENBREL [Suspect]
     Indication: JUVENILE ARTHRITIS
     Dosage: 50 MG, QWK
     Route: 058
     Dates: start: 20101125, end: 20110820
  2. ACETAMINOPHEN [Concomitant]
     Indication: JUVENILE ARTHRITIS
     Dosage: 1 G, AS NEEDED
     Route: 048
  3. NAPROXEN [Concomitant]
     Dosage: 250 MG, AS NEEDED
     Route: 048
  4. ENBREL [Suspect]
     Dosage: 50 MG, WEEKLY
     Route: 058
     Dates: start: 20110801
  5. NAPROXEN [Concomitant]
     Indication: JUVENILE ARTHRITIS
     Dosage: 250 MG, 2X/DAY
     Route: 048
  6. ARAVA [Concomitant]
     Indication: JUVENILE ARTHRITIS
     Dosage: 20 MG, 1X/DAY
     Route: 048
  7. ACETAMINOPHEN [Concomitant]
     Indication: PAIN

REACTIONS (4)
  - INJECTION SITE PAIN [None]
  - INCORRECT DRUG ADMINISTRATION RATE [None]
  - DRUG DOSE OMISSION [None]
  - ANXIETY [None]
